FAERS Safety Report 17820483 (Version 1)
Quarter: 2020Q2

REPORT INFORMATION
  Report Type: Spontaneous
  Country: JP (occurrence: JP)
  Receive Date: 20200525
  Receipt Date: 20200525
  Transmission Date: 20200714
  Serious: Yes (Hospitalization, Other)
  Sender: FDA-Public Use
  Company Number: JP-GLAXOSMITHKLINE-JP2020086416

PATIENT
  Sex: Female

DRUGS (6)
  1. LIMAS [Concomitant]
     Active Substance: LITHIUM CARBONATE
     Dosage: UNK
  2. LAMICTAL [Suspect]
     Active Substance: LAMOTRIGINE
     Indication: BIPOLAR DISORDER
     Dosage: 400 MG, 1D
     Route: 048
     Dates: end: 20200506
  3. LEXOTAN [Concomitant]
     Active Substance: BROMAZEPAM
     Dosage: UNK
  4. LAMICTAL [Suspect]
     Active Substance: LAMOTRIGINE
     Dosage: 25 MG, QOD
     Route: 048
     Dates: start: 20200509
  5. QUETIAPINE. [Concomitant]
     Active Substance: QUETIAPINE
     Dosage: UNK
  6. EURODIN (ESTAZOLAM) [Concomitant]
     Active Substance: ESTAZOLAM
     Dosage: UNK

REACTIONS (2)
  - Appendicitis [Recovered/Resolved]
  - Underdose [Unknown]

NARRATIVE: CASE EVENT DATE: 20200507
